FAERS Safety Report 7563157-X (Version None)
Quarter: 2011Q2

REPORT INFORMATION
  Report Type: 
  Country: None (occurrence: None)
  Receive Date: 20110615
  Receipt Date: 20110531
  Transmission Date: 20111010
  Serious: Yes (Other)
  Sender: FDA-Public Use
  Company Number: AUR-APL-2011-02339

PATIENT
  Age: 78 Year
  Sex: Male

DRUGS (7)
  1. MULTI-VITAMIN [Concomitant]
  2. ATENOLOL [Concomitant]
  3. ASPIRIN [Concomitant]
  4. GABAPENTIN [Suspect]
     Indication: NEUROPATHY PERIPHERAL
     Dosage: 300MG-TID
  5. SIMVASTATIN [Concomitant]
  6. LISINOPRIL [Concomitant]
  7. GABAPENTIN [Suspect]
     Indication: NEUROPATHY PERIPHERAL

REACTIONS (1)
  - ANORGASMIA [None]
